FAERS Safety Report 5846835-X (Version None)
Quarter: 2008Q3

REPORT INFORMATION
  Report Type: 
  Country: None (occurrence: None)
  Receive Date: 20080815
  Receipt Date: 20080807
  Transmission Date: 20090109
  Serious: Yes (Hospitalization, Disabling, Other)
  Sender: FDA-Public Use
  Company Number: US-ROCHE-396674

PATIENT
  Sex: Female
  Weight: 59.9 kg

DRUGS (1)
  1. ACCUTANE [Suspect]
     Indication: ACNE
     Route: 048
     Dates: start: 19961209, end: 19970515

REACTIONS (33)
  - ANXIETY [None]
  - ARRHYTHMIA [None]
  - BLOOD ALKALINE PHOSPHATASE INCREASED [None]
  - BLOOD BILIRUBIN INCREASED [None]
  - BRONCHITIS [None]
  - CHEILITIS [None]
  - CHEST DISCOMFORT [None]
  - CHEST PAIN [None]
  - COLITIS ULCERATIVE [None]
  - CROHN'S DISEASE [None]
  - DEFAECATION URGENCY [None]
  - DEPRESSION [None]
  - DYSPNOEA [None]
  - GASTROINTESTINAL DISORDER [None]
  - GASTROOESOPHAGEAL REFLUX DISEASE [None]
  - HEADACHE [None]
  - HYPERHIDROSIS [None]
  - IMPAIRED GASTRIC EMPTYING [None]
  - INFLAMMATORY BOWEL DISEASE [None]
  - INTESTINAL HAEMORRHAGE [None]
  - LIP DRY [None]
  - MIGRAINE [None]
  - MULTI-ORGAN DISORDER [None]
  - PALPITATIONS [None]
  - PARAESTHESIA [None]
  - PHONOPHOBIA [None]
  - PROCTITIS ULCERATIVE [None]
  - PYREXIA [None]
  - RECTAL HAEMORRHAGE [None]
  - SIGMOIDITIS [None]
  - SYNCOPE [None]
  - VISUAL IMPAIRMENT [None]
  - WHITE BLOOD CELL COUNT INCREASED [None]
